FAERS Safety Report 16148285 (Version 2)
Quarter: 2019Q2

REPORT INFORMATION
  Report Type: Spontaneous
  Country: US (occurrence: US)
  Receive Date: 20190402
  Receipt Date: 20190411
  Transmission Date: 20190711
  Serious: Yes (Hospitalization, Other)
  Sender: FDA-Public Use
  Company Number: US-BRISTOL-MYERS SQUIBB COMPANY-BMS-2019-031128

PATIENT
  Sex: Female

DRUGS (2)
  1. HEPARIN [Suspect]
     Active Substance: HEPARIN SODIUM
     Indication: PRODUCT USED FOR UNKNOWN INDICATION
     Dosage: UNK
     Route: 065
  2. ELIQUIS [Suspect]
     Active Substance: APIXABAN
     Indication: PRODUCT USED FOR UNKNOWN INDICATION
     Dosage: UNK
     Route: 065

REACTIONS (12)
  - Pneumonia [Unknown]
  - Intra-abdominal haematoma [Unknown]
  - Contraindicated product administered [Unknown]
  - Thyroid disorder [Unknown]
  - Dehydration [Unknown]
  - Atrial fibrillation [Unknown]
  - Arthritis [Unknown]
  - Haemorrhage [Unknown]
  - Skin exfoliation [Unknown]
  - Dysphonia [Unknown]
  - Anaemia [Unknown]
  - Bronchitis [Unknown]
